FAERS Safety Report 20901078 (Version 2)
Quarter: 2022Q3

REPORT INFORMATION
  Report Type: Spontaneous
  Country: JP (occurrence: JP)
  Receive Date: 20220601
  Receipt Date: 20220913
  Transmission Date: 20221027
  Serious: Yes (Hospitalization)
  Sender: FDA-Public Use
  Company Number: JP-GLAXOSMITHKLINE-JP2022JPN085281

PATIENT

DRUGS (12)
  1. BENLYSTA [Suspect]
     Active Substance: BELIMUMAB
     Indication: Systemic lupus erythematosus
     Dosage: 10 MG/KG, ONCE EVERY 2 WEEKS
     Route: 041
     Dates: start: 20180223, end: 20180323
  2. BENLYSTA [Suspect]
     Active Substance: BELIMUMAB
     Dosage: 10 MG/KG, ONCE EVERY 4 WEEKS
     Route: 041
     Dates: start: 20180420
  3. BENLYSTA [Suspect]
     Active Substance: BELIMUMAB
     Dosage: 10 MG/KG
     Route: 041
     Dates: start: 20180907, end: 20180907
  4. BENLYSTA [Suspect]
     Active Substance: BELIMUMAB
     Dosage: 10 MG/KG
     Route: 041
     Dates: start: 20181106, end: 20181204
  5. BENLYSTA [Suspect]
     Active Substance: BELIMUMAB
     Dosage: 10 MG/KG
     Route: 041
     Dates: start: 20190108, end: 20190108
  6. BENLYSTA [Suspect]
     Active Substance: BELIMUMAB
     Dosage: 10 MG/KG
     Route: 041
     Dates: start: 20190209, end: 20190209
  7. BENLYSTA [Suspect]
     Active Substance: BELIMUMAB
     Dosage: 10 MG/KG  EVERY FOUR WEEKS
     Route: 041
     Dates: start: 20190308, end: 20190405
  8. BENLYSTA [Suspect]
     Active Substance: BELIMUMAB
     Dosage: 10 MG/KG  EVERY FOUR WEEKS
     Route: 041
     Dates: end: 20220510
  9. PREDNISOLONE [Concomitant]
     Active Substance: PREDNISOLONE
     Indication: Systemic lupus erythematosus
     Dosage: 8 MG, 1D
     Route: 048
     Dates: start: 20111114
  10. PREDNISOLONE [Concomitant]
     Active Substance: PREDNISOLONE
     Indication: COVID-19
     Dosage: 20 MG
  11. CICLOSPORIN CAPSULES [Concomitant]
     Indication: Systemic lupus erythematosus
     Dosage: 300 MG, 1D
     Route: 048
     Dates: start: 20190304
  12. SULFAMETHOXAZOLE\TRIMETHOPRIM [Concomitant]
     Active Substance: SULFAMETHOXAZOLE\TRIMETHOPRIM
     Indication: Antifungal prophylaxis
     Dosage: 3 DF, WE
     Route: 048
     Dates: start: 20170606

REACTIONS (3)
  - COVID-19 [Recovering/Resolving]
  - Pyrexia [Unknown]
  - Oxygen saturation decreased [Unknown]

NARRATIVE: CASE EVENT DATE: 20220523
